FAERS Safety Report 20247340 (Version 3)
Quarter: 2022Q1

REPORT INFORMATION
  Report Type: Spontaneous
  Country: JP (occurrence: None)
  Receive Date: 20211229
  Receipt Date: 20220112
  Transmission Date: 20220423
  Serious: Yes (Other)
  Sender: FDA-Public Use
  Company Number: 2021A899708

PATIENT
  Age: 96 Year
  Sex: Female

DRUGS (7)
  1. BREZTRI [Suspect]
     Active Substance: BUDESONIDE\FORMOTEROL\GLYCOPYRROLATE
     Indication: Bronchitis chronic
     Route: 055
     Dates: start: 20211122, end: 20211221
  2. ASVERIN [Concomitant]
     Indication: Cough
     Dosage: MORNINGS AND EVENINGS
     Route: 065
     Dates: start: 202102
  3. CODEINE [Concomitant]
     Active Substance: CODEINE
     Indication: Cough
     Dosage: DOSE UNKNOWN
     Route: 065
     Dates: start: 202102, end: 20211121
  4. CODEINE [Concomitant]
     Active Substance: CODEINE
     Indication: Cough
     Dosage: DOSE UNKNOWN
     Route: 065
     Dates: start: 20211122
  5. FUROSEMIDE [Concomitant]
     Active Substance: FUROSEMIDE
     Indication: Oedema
     Dosage: MORNINGS
     Route: 065
     Dates: start: 202102
  6. CARBOCYSTEINE [Concomitant]
     Active Substance: CARBOCYSTEINE
     Dosage: DOSE UNKNOWN
     Route: 065
     Dates: start: 202102
  7. FUDOSTEINE [Concomitant]
     Active Substance: FUDOSTEINE
     Indication: Productive cough
     Route: 065
     Dates: start: 20211122

REACTIONS (4)
  - Cardiac failure [Unknown]
  - Oedema peripheral [Not Recovered/Not Resolved]
  - Effusion [Not Recovered/Not Resolved]
  - Blood albumin decreased [Unknown]

NARRATIVE: CASE EVENT DATE: 20211213
